FAERS Safety Report 6026871-3 (Version None)
Quarter: 2009Q1

REPORT INFORMATION
  Report Type: 
  Country: None (occurrence: None)
  Receive Date: 20090105
  Receipt Date: 20090102
  Transmission Date: 20090719
  Serious: Yes (Other)
  Sender: FDA-Public Use
  Company Number: US-BAYER-200836747NA

PATIENT
  Age: 28 Year
  Sex: Female

DRUGS (3)
  1. YASMIN [Suspect]
     Indication: DRUG USE FOR UNKNOWN INDICATION
  2. SOTRET [Suspect]
     Indication: DRUG USE FOR UNKNOWN INDICATION
  3. AMNESTEEM [Suspect]
     Indication: DRUG USE FOR UNKNOWN INDICATION

REACTIONS (1)
  - DEEP VEIN THROMBOSIS [None]
